FAERS Safety Report 9497823 (Version 1)
Quarter: 2013Q3

REPORT INFORMATION
  Report Type: Spontaneous
  Country: US (occurrence: US)
  Receive Date: 20130904
  Receipt Date: 20130904
  Transmission Date: 20140515
  Serious: No
  Sender: FDA-Public Use
  Company Number: US-AMGEN-USASP2013060424

PATIENT
  Age: 43 Year
  Sex: Male
  Weight: 31.29 kg

DRUGS (4)
  1. ENBREL [Suspect]
     Indication: PRODUCT USED FOR UNKNOWN INDICATION
     Dosage: 50 MG, QWK
     Route: 058
  2. PREDNISONE [Concomitant]
     Dosage: 10 MG, UNK
  3. ALLOPURINOL [Concomitant]
     Dosage: 300 MG, UNK
  4. METHOTREXATE [Concomitant]
     Dosage: 20 MG, UNK

REACTIONS (1)
  - Productive cough [Recovered/Resolved]
